FAERS Safety Report 6689857-1 (Version None)
Quarter: 2010Q2

REPORT INFORMATION
  Report Type: 
  Country: None (occurrence: None)
  Receive Date: 20100421
  Receipt Date: 20100407
  Transmission Date: 20101027
  Serious: Yes (Hospitalization)
  Sender: FDA-Public Use
  Company Number: ES-MEDIMMUNE-MEDI-0011077

PATIENT
  Age: 6 Month
  Weight: 3.34 kg

DRUGS (3)
  1. SYNAGIS [Suspect]
     Dates: start: 20091001, end: 20091201
  2. SYNAGIS [Suspect]
     Dates: start: 20100101, end: 20100101
  3. VACCINES [Suspect]
     Indication: PROPHYLAXIS
     Dates: start: 20100318

REACTIONS (1)
  - RESPIRATORY DISORDER [None]
